FAERS Safety Report 25846381 (Version 4)
Quarter: 2025Q4

REPORT INFORMATION
  Report Type: Spontaneous
  Country: US (occurrence: US)
  Receive Date: 20250925
  Receipt Date: 20251231
  Transmission Date: 20260117
  Serious: Yes (Other)
  Sender: SANOFI AVENTIS
  Company Number: US-SA-2025SA286515

PATIENT
  Age: 75 Year
  Sex: Female

DRUGS (3)
  1. LANTUS [Suspect]
     Active Substance: INSULIN GLARGINE
     Indication: Blood glucose increased
     Dosage: 80U AM 65U PM, BID
     Route: 058
  2. LANTUS [Suspect]
     Active Substance: INSULIN GLARGINE
     Dosage: 150 IU, QD
     Route: 058
  3. LANTUS [Suspect]
     Active Substance: INSULIN GLARGINE
     Dosage: 150 IU, BID
     Route: 058

REACTIONS (2)
  - Blindness [Unknown]
  - Off label use [Unknown]
